FAERS Safety Report 5704261-8 (Version None)
Quarter: 2008Q2

REPORT INFORMATION
  Report Type: 
  Country: None (occurrence: None)
  Receive Date: 20080414
  Receipt Date: 20080408
  Transmission Date: 20081010
  Serious: Yes (Death)
  Sender: FDA-Public Use
  Company Number: US-AVENTIS-200811898US

PATIENT
  Sex: Female
  Weight: 60.78 kg

DRUGS (15)
  1. ARAVA [Suspect]
  2. OPANA ER [Suspect]
     Dosage: DOSE: UNK
     Dates: start: 20070401
  3. OPANA ER [Suspect]
     Dosage: DOSE: 20 MG, 2 TABS IN AM, 1 TAB IN PM
     Route: 048
     Dates: start: 20070509, end: 20070510
  4. OPANA [Suspect]
     Indication: BREAKTHROUGH PAIN
     Dosage: DOSE: UNK
     Dates: start: 20070401
  5. OPANA [Suspect]
     Route: 048
     Dates: start: 20070501, end: 20070510
  6. DURAGESIC-100 [Suspect]
     Dosage: DOSE: UNK
  7. DURAGESIC-100 [Suspect]
     Dosage: DOSE: 100 MG - 1 PATCH EVERY 3 DAYS
     Route: 062
     Dates: start: 20070401, end: 20070501
  8. VICODIN ES [Suspect]
     Dosage: DOSE: UNK
  9. VICODIN ES [Suspect]
     Dosage: DOSE: 1 TAB 4 TIMES DAILY
     Route: 048
     Dates: end: 20070510
  10. AMITRIPTYLINE HCL [Suspect]
     Route: 048
     Dates: end: 20070510
  11. ZOLOFT [Suspect]
     Route: 048
     Dates: end: 20070510
  12. PROVIGIL [Suspect]
     Dates: end: 20070510
  13. LEVOXYL [Suspect]
     Dosage: DOSE: 2 TABS DAILY
     Route: 048
     Dates: end: 20070510
  14. LUNESTA [Suspect]
     Route: 048
     Dates: end: 20070510
  15. KLONOPIN [Suspect]
     Dosage: DOSE: 2 MG, 3 IN 1 DAY

REACTIONS (1)
  - DRUG TOXICITY [None]
